FAERS Safety Report 7416507-9 (Version None)
Quarter: 2011Q2

REPORT INFORMATION
  Report Type: 
  Country: None (occurrence: None)
  Receive Date: 20110414
  Receipt Date: 20110323
  Transmission Date: 20111010
  Serious: Yes (Hospitalization)
  Sender: FDA-Public Use
  Company Number: LT-AMGEN-LTUCT2010002264

PATIENT
  Age: 75 Year
  Sex: Male

DRUGS (6)
  1. ASPIRIN [Concomitant]
     Indication: MYOCARDIAL ISCHAEMIA
     Dosage: UNK
     Route: 048
     Dates: start: 20020101, end: 20101205
  2. PANITUMUMAB [Suspect]
     Indication: COLORECTAL CANCER
     Dosage: UNK
  3. BETALOC ZOK [Concomitant]
     Route: 048
     Dates: start: 20020101, end: 20101205
  4. RAMIPRIL [Concomitant]
     Route: 048
     Dates: start: 20020101, end: 20101205
  5. TRIMETAZIDINE [Concomitant]
     Route: 048
     Dates: start: 20020101, end: 20101205
  6. ASPIRIN [Concomitant]
     Indication: HYPERTENSION

REACTIONS (2)
  - URETERIC OBSTRUCTION [None]
  - KIDNEY INFECTION [None]
